FAERS Safety Report 21743283 (Version 1)
Quarter: 2022Q4

REPORT INFORMATION
  Report Type: Spontaneous
  Country: PL (occurrence: PL)
  Receive Date: 20221217
  Receipt Date: 20221217
  Transmission Date: 20230112
  Serious: Yes (Life-Threatening, Hospitalization, Other)
  Sender: FDA-Public Use
  Company Number: None

PATIENT
  Age: 64 Year
  Sex: Female
  Weight: 72 kg

DRUGS (2)
  1. TRAMADOL [Suspect]
     Active Substance: TRAMADOL
     Indication: Osteoarthritis
     Dosage: 400 MILLIGRAM
     Route: 048
     Dates: start: 2017, end: 20181205
  2. VINPOCETINE [Suspect]
     Active Substance: VINPOCETINE
     Indication: Dizziness
     Dosage: 20 MILLIGRAM
     Route: 048
     Dates: start: 20181203, end: 20181205

REACTIONS (2)
  - Head injury [Recovering/Resolving]
  - Seizure [Recovering/Resolving]

NARRATIVE: CASE EVENT DATE: 20181205
